FAERS Safety Report 7935475-4 (Version None)
Quarter: 2011Q4

REPORT INFORMATION
  Report Type: 
  Country: None (occurrence: None)
  Receive Date: 20111123
  Receipt Date: 20111114
  Transmission Date: 20120403
  Serious: Yes (Hospitalization)
  Sender: FDA-Public Use
  Company Number: US-AMGEN-USASP2011060145

PATIENT
  Age: 79 Year
  Sex: Female

DRUGS (9)
  1. XGEVA [Suspect]
     Indication: METASTASES TO BONE
     Dosage: 120 MG, UNK
     Dates: start: 20111111
  2. LEVOTHYROXINE SODIUM [Concomitant]
     Dosage: 1 MUG, UNK
  3. VITAMIN TAB [Concomitant]
  4. ASPIRIN [Concomitant]
  5. CENTRUM SILVER [Concomitant]
  6. VITAMIN B-12 [Concomitant]
  7. VICODIN ES [Concomitant]
     Indication: PAIN
     Dosage: UNK UNK, PRN
  8. MAG OXIDE [Concomitant]
     Dosage: 2 MG, UNK
  9. TAMOXIFEN CITRATE [Concomitant]
     Dosage: 1 MG, QD
     Dates: start: 20110811

REACTIONS (2)
  - DYSPNOEA [None]
  - OXYGEN SATURATION DECREASED [None]
